FAERS Safety Report 8438623-5 (Version None)
Quarter: 2012Q2

REPORT INFORMATION
  Report Type: 
  Country: None (occurrence: None)
  Receive Date: 20120615
  Receipt Date: 20120611
  Transmission Date: 20120825
  Serious: No
  Sender: FDA-Public Use
  Company Number: US-PFIZER INC-2012140291

PATIENT
  Age: 82 Year
  Sex: Female
  Weight: 77.098 kg

DRUGS (4)
  1. PREMARIN [Suspect]
     Indication: UTERINE PROLAPSE
  2. INSULIN [Concomitant]
     Indication: DIABETES MELLITUS
     Dosage: UNK
  3. PREMARIN [Suspect]
     Indication: OFF LABEL USE
     Dosage: UNK
     Route: 067
     Dates: start: 20110101
  4. ASPIRIN [Concomitant]
     Dosage: 81 MG, UNK

REACTIONS (2)
  - RASH [None]
  - MALAISE [None]
